FAERS Safety Report 5037798-8 (Version None)
Quarter: 2006Q2

REPORT INFORMATION
  Report Type: 
  Country: None (occurrence: None)
  Receive Date: 20060602
  Receipt Date: 20060207
  Transmission Date: 20061013
  Serious: Yes (Hospitalization)
  Sender: FDA-Public Use
  Company Number: US200602002061

PATIENT
  Age: 86 Year
  Sex: Male

DRUGS (3)
  1. ALIMTA [Suspect]
     Indication: MESOTHELIOMA
     Dosage: 500 MG/M2
     Dates: start: 20060106
  2. FOLIC ACID [Concomitant]
  3. CYANOCOBALAMIN [Concomitant]

REACTIONS (2)
  - NAUSEA [None]
  - VOMITING [None]
